FAERS Safety Report 11338854 (Version 1)
Quarter: 2015Q3

REPORT INFORMATION
  Report Type: Spontaneous
  Country: US (occurrence: US)
  Receive Date: 20150803
  Receipt Date: 20150803
  Transmission Date: 20151125
  Serious: Yes (Other)
  Sender: FDA-Public Use
  Company Number: US-ELI_LILLY_AND_COMPANY-US200808004686

PATIENT
  Age: 11 Year
  Sex: Male

DRUGS (2)
  1. STRATTERA [Suspect]
     Active Substance: ATOMOXETINE HYDROCHLORIDE
     Dosage: 36 MG, UNK
     Dates: start: 20080723
  2. STRATTERA [Suspect]
     Active Substance: ATOMOXETINE HYDROCHLORIDE
     Dosage: 18 MG, UNK

REACTIONS (2)
  - Abnormal behaviour [Recovered/Resolved]
  - Suicidal ideation [Recovered/Resolved]
